FAERS Safety Report 16678716 (Version 2)
Quarter: 2019Q3

REPORT INFORMATION
  Report Type: Report from Study
  Country: RU (occurrence: RU)
  Receive Date: 20190807
  Receipt Date: 20190814
  Transmission Date: 20191004
  Serious: Yes (Hospitalization)
  Sender: FDA-Public Use
  Company Number: PHHO2019RU007943

PATIENT
  Age: 35 Year
  Sex: Male
  Weight: 81.2 kg

DRUGS (5)
  1. AIN457 [Suspect]
     Active Substance: SECUKINUMAB
     Indication: AXIAL SPONDYLOARTHRITIS
     Dosage: CODE NOT BROKEN
     Route: 058
     Dates: start: 20170817, end: 20190228
  2. MELOXICAM. [Concomitant]
     Active Substance: MELOXICAM
     Indication: SPONDYLITIS
     Dosage: 15 MG, QD
     Route: 048
     Dates: start: 20161012
  3. OMEPRAZOL [Concomitant]
     Active Substance: OMEPRAZOLE
     Indication: PROPHYLAXIS
     Dosage: 20 MG, QD
     Route: 048
     Dates: start: 20160921
  4. AIN457 [Suspect]
     Active Substance: SECUKINUMAB
     Indication: AXIAL SPONDYLOARTHRITIS
     Dosage: CODE NOT BROKEN
     Route: 058
     Dates: start: 20170330, end: 20170720
  5. AIN457 [Suspect]
     Active Substance: SECUKINUMAB
     Dosage: CODE NOT BROKEN
     Route: 058
     Dates: start: 20190328

REACTIONS (1)
  - Calculus urinary [Recovered/Resolved with Sequelae]

NARRATIVE: CASE EVENT DATE: 20190730
